FAERS Safety Report 7828882-1 (Version None)
Quarter: 2011Q4

REPORT INFORMATION
  Report Type: 
  Country: None (occurrence: None)
  Receive Date: 20111020
  Receipt Date: 20100303
  Transmission Date: 20120403
  Serious: No
  Sender: FDA-Public Use
  Company Number: US-BAYER-201015684NA

PATIENT
  Sex: Female
  Weight: 126.98 kg

DRUGS (15)
  1. CIPROFLOXACIN [Suspect]
     Indication: PRODUCT USED FOR UNKNOWN INDICATION
  2. METFORMIN HCL [Concomitant]
     Indication: DIABETES MELLITUS
  3. CENTRUM SILVER [Concomitant]
  4. GLYBURIDE [Concomitant]
     Indication: DIABETES MELLITUS
  5. DIOVAN HCT [Concomitant]
     Indication: HYPERTENSION
  6. FUROSEMIDE [Concomitant]
     Indication: HYPERTENSION
  7. LEVOTHYROXINE SODIUM [Concomitant]
     Indication: THYROIDECTOMY
  8. MAGNESIUM [Concomitant]
  9. PRESENT VISION EYE VITAMIN [Concomitant]
  10. CARVEDILOL [Concomitant]
     Indication: HYPERTENSION
  11. MIRALAX [Concomitant]
     Indication: CONSTIPATION
  12. NEXIUM [Concomitant]
     Indication: ABDOMINAL DISCOMFORT
  13. CALCIUM CARBONATE [Concomitant]
  14. RELAFEN [Concomitant]
     Indication: ARTHRITIS
  15. AMLODIPINE [Concomitant]
     Indication: HYPERTENSION

REACTIONS (2)
  - BLOOD PRESSURE ABNORMAL [None]
  - DRUG HYPERSENSITIVITY [None]
